FAERS Safety Report 8807545 (Version 2)
Quarter: 2012Q4

REPORT INFORMATION
  Report Type: 
  Country: US (occurrence: US)
  Receive Date: 20120925
  Receipt Date: 20121017
  Transmission Date: 20130627
  Serious: No
  Sender: FDA-Public Use
  Company Number: US-PFIZER INC-2012236812

PATIENT
  Age: 49 Year
  Sex: Female
  Weight: 61 kg

DRUGS (3)
  1. CHANTIX [Suspect]
     Indication: SMOKING CESSATION THERAPY
     Dosage: 1 mg, 2x/day
     Route: 048
     Dates: start: 20020109
  2. CHANTIX [Suspect]
     Indication: EX-TOBACCO USER
     Dosage: 0.5 mg, 1x/day
     Route: 048
     Dates: start: 201111, end: 2012
  3. CHANTIX [Suspect]
     Dosage: 1 mg, 2x/day
     Route: 048
     Dates: start: 20120920, end: 20120924

REACTIONS (6)
  - Malaise [Recovered/Resolved]
  - Bedridden [Recovered/Resolved]
  - Gastric disorder [Recovered/Resolved]
  - Decreased appetite [Recovered/Resolved]
  - Nausea [Recovered/Resolved]
  - Nightmare [Recovered/Resolved]
